FAERS Safety Report 8121098-3 (Version None)
Quarter: 2012Q1

REPORT INFORMATION
  Report Type: 
  Country: None (occurrence: None)
  Receive Date: 20120208
  Receipt Date: 20120202
  Transmission Date: 20120608
  Serious: Yes (Death, Hospitalization)
  Sender: FDA-Public Use
  Company Number: DE-BRISTOL-MYERS SQUIBB COMPANY-16312225

PATIENT
  Age: 66 Year
  Sex: Female
  Weight: 75 kg

DRUGS (19)
  1. CISPLATIN [Suspect]
     Indication: NON-SMALL CELL LUNG CANCER
     Route: 065
     Dates: start: 20101202, end: 20101212
  2. ZOPICLON [Concomitant]
     Dates: start: 20101229
  3. PRASUGREL [Concomitant]
     Dates: start: 20101228
  4. DEXAMETHASONE [Concomitant]
     Dates: start: 20101228
  5. ACETYLSALICYLIC ACID SRT [Concomitant]
     Dates: start: 20090831
  6. FLUCONAZOLE [Concomitant]
     Dates: start: 20110125
  7. LIQUAEMIN INJ [Concomitant]
     Dates: start: 20101228
  8. FOLSAN [Concomitant]
     Dates: start: 20101228
  9. TORSEMIDE [Concomitant]
     Dates: start: 20101229
  10. NALOXONE [Concomitant]
  11. METOPROLOL [Concomitant]
     Dates: start: 20101212
  12. TORSEMIDE [Concomitant]
     Dates: start: 20101228
  13. FUROSEMIDE [Concomitant]
     Dates: start: 20101229
  14. BISOPROLOL [Concomitant]
  15. RAMIPRIL [Concomitant]
  16. ACETYLCYSTEINE [Concomitant]
     Dates: start: 20101228
  17. PEMETREXED DISODIUM [Suspect]
     Indication: NON-SMALL CELL LUNG CANCER
     Route: 065
     Dates: start: 20101202, end: 20101202
  18. PRAVASTATIN [Concomitant]
  19. CODEINE PHOSPHATE [Concomitant]
     Dates: start: 20101229

REACTIONS (1)
  - RENAL FAILURE [None]
